FAERS Safety Report 6511307-6 (Version None)
Quarter: 2009Q4

REPORT INFORMATION
  Report Type: 
  Country: None (occurrence: None)
  Receive Date: 20091222
  Receipt Date: 20090325
  Transmission Date: 20100525
  Serious: No
  Sender: FDA-Public Use
  Company Number: US-ASTRAZENECA-2009UW07703

PATIENT
  Age: 73 Year
  Sex: Female
  Weight: 83.9 kg

DRUGS (2)
  1. CRESTOR [Suspect]
     Route: 048
     Dates: start: 20000101
  2. COUMADIN [Concomitant]

REACTIONS (2)
  - DIARRHOEA [None]
  - FLUSHING [None]
